FAERS Safety Report 16903810 (Version 1)
Quarter: 2019Q4

REPORT INFORMATION
  Report Type: Spontaneous
  Country: CN (occurrence: CN)
  Receive Date: 20191010
  Receipt Date: 20191010
  Transmission Date: 20200122
  Serious: Yes (Hospitalization)
  Sender: FDA-Public Use
  Company Number: CN-FRESENIUS KABI-FK201911021

PATIENT
  Age: 43 Year
  Sex: Male

DRUGS (1)
  1. METHYLPREDNISOLONE (MANUFACTURER UNKNOWN) [Suspect]
     Active Substance: METHYLPREDNISOLONE
     Indication: UVEITIS
     Route: 042

REACTIONS (3)
  - Herpes simplex [Recovering/Resolving]
  - Encephalitis viral [Recovering/Resolving]
  - Necrotising retinitis [Not Recovered/Not Resolved]
